FAERS Safety Report 9143060 (Version 2)
Quarter: 2013Q1

REPORT INFORMATION
  Report Type: Spontaneous
  Country: JP (occurrence: JP)
  Receive Date: 20130306
  Receipt Date: 20130325
  Transmission Date: 20140127
  Serious: Yes (Death, Disabling)
  Sender: FDA-Public Use
  Company Number: JP-NAPPMUNDI-GBR-2013-0013365

PATIENT
  Age: 57 Year
  Sex: Female

DRUGS (12)
  1. OXYCODONE HCL PR TABLET [Suspect]
     Indication: CANCER PAIN
     Dosage: 5 MG, BID
     Route: 048
     Dates: start: 20130117, end: 20130204
  2. AQUPLA [Suspect]
     Indication: CERVIX CARCINOMA
     Dosage: 120 MG, SINGLE
     Route: 042
     Dates: start: 20130131, end: 20130131
  3. IRINOTECAN HYDROCHLORIDE [Suspect]
     Indication: CERVIX CARCINOMA
     Dosage: 70 MG, SINGLE
     Route: 042
     Dates: start: 20130131, end: 20130131
  4. SOLDEM 3A [Concomitant]
     Dosage: UNK
  5. GRANISETRON [Concomitant]
     Indication: PROPHYLAXIS OF NAUSEA AND VOMITING
     Dosage: 3 MG, UNK
     Route: 042
     Dates: start: 20130131, end: 20130131
  6. DEXART [Concomitant]
  7. EMEND                              /01627301/ [Concomitant]
  8. LANTUS [Concomitant]
  9. NORVASC [Concomitant]
     Indication: HYPERTENSION
     Dosage: 5 MG, UNK
     Route: 048
  10. LOXONIN [Concomitant]
  11. MUCOSTA [Concomitant]
  12. MAGLAX [Concomitant]

REACTIONS (5)
  - Gastrointestinal haemorrhage [Fatal]
  - Neutropenia [Fatal]
  - Renal failure [Not Recovered/Not Resolved]
  - Sepsis [Fatal]
  - Thrombocytopenia [Fatal]
